FAERS Safety Report 18323120 (Version 1)
Quarter: 2020Q3

REPORT INFORMATION
  Report Type: Spontaneous
  Country: US (occurrence: US)
  Receive Date: 20200929
  Receipt Date: 20200929
  Transmission Date: 20201103
  Serious: Yes (Other)
  Sender: FDA-Public Use
  Company Number: None

PATIENT
  Age: 14 Year
  Sex: Female
  Weight: 54 kg

DRUGS (1)
  1. CREST 3D WHITE CHARCOAL [Suspect]
     Active Substance: SODIUM FLUORIDE
     Indication: DENTAL CARE
     Dosage: ?          OTHER ROUTE:DENTAL APPLICATION?
     Dates: start: 20200928, end: 20200928

REACTIONS (2)
  - Stomatitis [None]
  - Hypersensitivity [None]

NARRATIVE: CASE EVENT DATE: 20200928
